FAERS Safety Report 9707827 (Version 1)
Quarter: 2013Q4

REPORT INFORMATION
  Report Type: Spontaneous
  Country: US (occurrence: None)
  Receive Date: 20131122
  Receipt Date: 20131122
  Transmission Date: 20140711
  Serious: Yes (Life-Threatening)
  Sender: FDA-Public Use
  Company Number: None

PATIENT
  Age: 55 Year
  Sex: Male

DRUGS (1)
  1. MORPHINE [Suspect]
     Indication: PAIN
     Route: 048
     Dates: start: 20131018, end: 20131021

REACTIONS (8)
  - Unresponsive to stimuli [None]
  - Tachycardia [None]
  - Pyrexia [None]
  - Sepsis [None]
  - Drug abuse [None]
  - Confusional state [None]
  - Sedation [None]
  - Hypervigilance [None]
